FAERS Safety Report 15387699 (Version 1)
Quarter: 2018Q4

REPORT INFORMATION
  Report Type: Report from Study
  Country: CA (occurrence: CA)
  Receive Date: 20180914
  Receipt Date: 20180914
  Transmission Date: 20190204
  Serious: Yes (Other)
  Sender: FDA-Public Use
  Company Number: CA-GLAXOSMITHKLINE-CA2018GSK166153

PATIENT
  Age: 60 Year
  Sex: Female

DRUGS (12)
  1. SALBUTAMOL SULPHATE [Suspect]
     Active Substance: ALBUTEROL SULFATE
     Indication: PRODUCT USED FOR UNKNOWN INDICATION
     Dosage: UNK
  2. TORADOL [Suspect]
     Active Substance: KETOROLAC TROMETHAMINE
     Indication: PRODUCT USED FOR UNKNOWN INDICATION
     Dosage: UNK
  3. STATEX (MORPHIN) [Suspect]
     Active Substance: MORPHINE SULFATE
     Indication: PRODUCT USED FOR UNKNOWN INDICATION
     Dosage: 5 MG, PRN
  4. TYLENOL [Concomitant]
     Active Substance: ACETAMINOPHEN
     Indication: PRODUCT USED FOR UNKNOWN INDICATION
     Dosage: UNK
  5. PREDNISONE. [Suspect]
     Active Substance: PREDNISONE
     Indication: PRODUCT USED FOR UNKNOWN INDICATION
     Dosage: UNK UNK, QD
  6. OMNARIS [Concomitant]
     Active Substance: CICLESONIDE
     Indication: PRODUCT USED FOR UNKNOWN INDICATION
     Dosage: 2 DF(SPRAY), UNK
  7. REACTINE (CETIRIZINE HYDROCHLORIDE) [Concomitant]
     Active Substance: CETIRIZINE HYDROCHLORIDE
     Indication: PRODUCT USED FOR UNKNOWN INDICATION
     Dosage: UNK
  8. CODEINE [Concomitant]
     Active Substance: CODEINE
     Indication: PRODUCT USED FOR UNKNOWN INDICATION
     Dosage: UNK
  9. ADVAIR HFA [Suspect]
     Active Substance: FLUTICASONE PROPIONATE\SALMETEROL XINAFOATE
     Indication: PRODUCT USED FOR UNKNOWN INDICATION
     Dosage: 2 PUFF(S), BID
     Route: 055
  10. SINGULAIR [Suspect]
     Active Substance: MONTELUKAST SODIUM
     Indication: PRODUCT USED FOR UNKNOWN INDICATION
     Dosage: 10 MG, QD
  11. AMLODIPINE BESYLATE. [Concomitant]
     Active Substance: AMLODIPINE BESYLATE
     Indication: PRODUCT USED FOR UNKNOWN INDICATION
     Dosage: 5 MG, UNK
     Route: 048
  12. CALCIUM SUPPLEMENT [Concomitant]
     Active Substance: CALCIUM
     Indication: PRODUCT USED FOR UNKNOWN INDICATION
     Dosage: UNK

REACTIONS (40)
  - Nasal polyps [Unknown]
  - Chronic gastritis [Unknown]
  - Eosinophilic oesophagitis [Unknown]
  - Abdominal discomfort [Not Recovered/Not Resolved]
  - Constipation [Unknown]
  - Bronchiectasis [Unknown]
  - Abdominal pain [Not Recovered/Not Resolved]
  - Rash erythematous [Unknown]
  - Angioedema [Unknown]
  - Cough [Recovering/Resolving]
  - Eosinophilia [Recovered/Resolved]
  - Osteoporosis [Not Recovered/Not Resolved]
  - Mood swings [Unknown]
  - Night sweats [Unknown]
  - Osteonecrosis [Unknown]
  - Bronchial hyperreactivity [Unknown]
  - Hypersensitivity [Unknown]
  - Rash pruritic [Unknown]
  - Decreased appetite [Unknown]
  - Vomiting [Unknown]
  - Productive cough [Recovering/Resolving]
  - Sinus congestion [Not Recovered/Not Resolved]
  - Gastric mucosa erythema [Unknown]
  - Fatigue [Unknown]
  - Wheezing [Recovered/Resolved]
  - Sinusitis [Recovered/Resolved]
  - Chest pain [Unknown]
  - Headache [Unknown]
  - Ascariasis [Unknown]
  - Weight decreased [Unknown]
  - Chest discomfort [Not Recovered/Not Resolved]
  - Blood count abnormal [Unknown]
  - Dyspnoea exertional [Recovered/Resolved]
  - Skin atrophy [Unknown]
  - Gastrooesophageal reflux disease [Unknown]
  - Dyspepsia [Unknown]
  - Diabetes mellitus [Unknown]
  - Condition aggravated [Unknown]
  - Increased tendency to bruise [Unknown]
  - Hypertension [Unknown]

NARRATIVE: CASE EVENT DATE: 20160914
